FAERS Safety Report 16366641 (Version 1)
Quarter: 2019Q2

REPORT INFORMATION
  Report Type: Spontaneous
  Country: US (occurrence: US)
  Receive Date: 20190422
  Receipt Date: 20190422
  Transmission Date: 20190711
  Serious: No
  Sender: FDA-Public Use
  Company Number: None

PATIENT
  Age: 57 Year
  Sex: Female

DRUGS (1)
  1. SEMAGLUTIDE [Suspect]
     Active Substance: SEMAGLUTIDE
     Indication: DIABETES MELLITUS
     Route: 058
     Dates: start: 20190218, end: 20190415

REACTIONS (3)
  - Drug intolerance [None]
  - Gastrooesophageal reflux disease [None]
  - Dysgeusia [None]

NARRATIVE: CASE EVENT DATE: 20190415
